FAERS Safety Report 5557248-2 (Version None)
Quarter: 2007Q4

REPORT INFORMATION
  Report Type: 
  Country: None (occurrence: None)
  Receive Date: 20071214
  Receipt Date: 20070914
  Transmission Date: 20080405
  Serious: No
  Sender: FDA-Public Use
  Company Number: US-AMGEN-KDL243132

PATIENT
  Sex: Male

DRUGS (2)
  1. ENBREL [Suspect]
     Indication: RHEUMATOID ARTHRITIS
     Route: 058
     Dates: start: 20070903
  2. ENBREL [Suspect]
     Indication: JUVENILE ARTHRITIS

REACTIONS (6)
  - DIARRHOEA [None]
  - HYPOAESTHESIA [None]
  - JOINT STIFFNESS [None]
  - PARAESTHESIA [None]
  - PYREXIA [None]
  - VOMITING [None]
